FAERS Safety Report 6022368-5 (Version None)
Quarter: 2008Q4

REPORT INFORMATION
  Report Type: 
  Country: None (occurrence: None)
  Receive Date: 20081230
  Receipt Date: 20081223
  Transmission Date: 20090506
  Serious: Yes (Other)
  Sender: FDA-Public Use
  Company Number: DE-JNJFOC-20081205766

PATIENT
  Age: 60 Year
  Sex: Male

DRUGS (5)
  1. IMODIUM [Suspect]
     Indication: DIARRHOEA
     Route: 048
  2. DIAZEPAM [Concomitant]
     Route: 065
  3. TILIDIN COMPOSITUM [Concomitant]
     Route: 065
  4. DICLOFENAC SODIUM [Concomitant]
     Route: 065
  5. PARACETAMOL COMPOSITUM [Concomitant]
     Route: 065

REACTIONS (1)
  - DRUG DEPENDENCE [None]
